FAERS Safety Report 5837049-8 (Version None)
Quarter: 2008Q3

REPORT INFORMATION
  Report Type: 
  Country: None (occurrence: None)
  Receive Date: 20080807
  Receipt Date: 20080730
  Transmission Date: 20090109
  Serious: Yes (Other)
  Sender: FDA-Public Use
  Company Number: GB-JNJFOC-20080603337

PATIENT
  Age: 50 Year
  Sex: Female

DRUGS (8)
  1. REMICADE [Suspect]
     Indication: RHEUMATOID ARTHRITIS
     Route: 042
  2. PREDNISOLONE [Concomitant]
  3. METHOTREXATE [Concomitant]
  4. MORPHINE [Concomitant]
  5. LACTULOSE [Concomitant]
  6. PREMARIN [Concomitant]
  7. CALCIUM [Concomitant]
  8. VITAMIN D [Concomitant]

REACTIONS (3)
  - ESCHERICHIA URINARY TRACT INFECTION [None]
  - MORGANELLA INFECTION [None]
  - URINARY TRACT INFECTION STAPHYLOCOCCAL [None]
